FAERS Safety Report 13382837 (Version 4)
Quarter: 2017Q3

REPORT INFORMATION
  Report Type: Spontaneous
  Country: US (occurrence: US)
  Receive Date: 20170329
  Receipt Date: 20170811
  Transmission Date: 20171127
  Serious: Yes (Other)
  Sender: FDA-Public Use
  Company Number: PHEH2017US008893

PATIENT
  Age: 36 Year
  Sex: Female

DRUGS (3)
  1. ONDANSETRONE DR. REDDY^S [Suspect]
     Active Substance: ONDANSETRON HYDROCHLORIDE
     Indication: VOMITING IN PREGNANCY
     Dosage: 4 MG, UNK
     Route: 048
     Dates: start: 20070108, end: 20070901
  2. ZOFRAN ODT [Suspect]
     Active Substance: ONDANSETRON HYDROCHLORIDE
     Indication: PRODUCT USED FOR UNKNOWN INDICATION
     Route: 048
  3. ZOFRAN [Suspect]
     Active Substance: ONDANSETRON HYDROCHLORIDE
     Indication: VOMITING IN PREGNANCY
     Dosage: 4 MG, PRN
     Route: 048
     Dates: start: 20061213, end: 20070108

REACTIONS (31)
  - Upper limb fracture [Unknown]
  - Obesity [Unknown]
  - Cough [Unknown]
  - Sinus headache [Unknown]
  - Dysmenorrhoea [Unknown]
  - Contusion [Unknown]
  - Product use in unapproved indication [Unknown]
  - Premature delivery [Unknown]
  - Haemorrhoids [Unknown]
  - Joint dislocation [Unknown]
  - Gestational diabetes [Unknown]
  - Uterine leiomyoma [Unknown]
  - Pain in extremity [Unknown]
  - Sinusitis [Unknown]
  - Menorrhagia [Unknown]
  - Vulvovaginal mycotic infection [Unknown]
  - Premature rupture of membranes [Unknown]
  - Maternal exposure during pregnancy [Unknown]
  - Rhinitis allergic [Unknown]
  - Fungal infection [Unknown]
  - Bronchial hyperreactivity [Unknown]
  - Peripheral swelling [Unknown]
  - Hyperlipidaemia [Unknown]
  - Peptic ulcer [Unknown]
  - Emotional distress [Unknown]
  - Tendonitis [Unknown]
  - Headache [Unknown]
  - Injury [Unknown]
  - Gastric ulcer [Unknown]
  - Migraine [Unknown]
  - Ligament sprain [Unknown]

NARRATIVE: CASE EVENT DATE: 20070525
